FAERS Safety Report 10594870 (Version 2)
Quarter: 2014Q4

REPORT INFORMATION
  Report Type: Spontaneous
  Country: ES (occurrence: ES)
  Receive Date: 20141120
  Receipt Date: 20141217
  Transmission Date: 20150529
  Serious: Yes (Death, Other)
  Sender: FDA-Public Use
  Company Number: ES-ABBVIE-14K-144-1310064-00

PATIENT
  Age: 50 Year
  Sex: Male
  Weight: 120 kg

DRUGS (4)
  1. HUMIRA [Suspect]
     Active Substance: ADALIMUMAB
     Indication: PSORIASIS
     Route: 058
     Dates: start: 20130419, end: 20140421
  2. TAMSULOSINA [Concomitant]
     Active Substance: TAMSULOSIN HYDROCHLORIDE
     Indication: PRODUCT USED FOR UNKNOWN INDICATION
  3. DUTASTERIDA [Concomitant]
     Indication: PRODUCT USED FOR UNKNOWN INDICATION
  4. HUMIRA [Suspect]
     Active Substance: ADALIMUMAB
     Indication: PSORIATIC ARTHROPATHY

REACTIONS (11)
  - Liver disorder [Unknown]
  - Hepatic cirrhosis [Unknown]
  - Multi-organ failure [Unknown]
  - Atelectasis [Unknown]
  - Pyrexia [Unknown]
  - Cholangiocarcinoma [Fatal]
  - Lymphadenopathy [Unknown]
  - Asthenia [Unknown]
  - Hepatic lesion [Unknown]
  - Ascites [Unknown]
  - Weight decreased [Unknown]

NARRATIVE: CASE EVENT DATE: 20140521
